FAERS Safety Report 22604602 (Version 1)
Quarter: 2023Q2

REPORT INFORMATION
  Report Type: Spontaneous
  Country: US (occurrence: None)
  Receive Date: 20230615
  Receipt Date: 20230615
  Transmission Date: 20230722
  Serious: No
  Sender: FDA-Public Use
  Company Number: 2023A138220

PATIENT
  Weight: 97.5 kg

DRUGS (1)
  1. LOKELMA [Suspect]
     Active Substance: SODIUM ZIRCONIUM CYCLOSILICATE
     Route: 048
     Dates: start: 202306

REACTIONS (4)
  - Dizziness [Recovering/Resolving]
  - Joint swelling [Not Recovered/Not Resolved]
  - Skin tightness [Unknown]
  - Hyperaesthesia [Unknown]
